FAERS Safety Report 8924392 (Version 1)
Quarter: 2012Q4

REPORT INFORMATION
  Report Type: 
  Country: US (occurrence: US)
  Receive Date: 20121126
  Receipt Date: 20121126
  Transmission Date: 20130627
  Serious: No
  Sender: FDA-Public Use
  Company Number: US-MYLANLABS-2012S1015267

PATIENT
  Sex: Female

DRUGS (3)
  1. CLONAZEPAM [Suspect]
     Indication: RESTLESS LEGS SYNDROME
     Route: 048
     Dates: start: 20120723, end: 20120724
  2. TOPROL [Concomitant]
     Indication: BLOOD PRESSURE INCREASED
  3. ARMOUR THYROID [Concomitant]
     Indication: HYPOTHYROIDISM
     Dosage: 2grain

REACTIONS (5)
  - Drug ineffective for unapproved indication [Recovered/Resolved]
  - Restless legs syndrome [Recovered/Resolved]
  - Arrhythmia [Recovered/Resolved]
  - Heart rate irregular [Recovered/Resolved]
  - Sleep disorder [Recovered/Resolved]
